FAERS Safety Report 9305423 (Version 2)
Quarter: 2013Q2

REPORT INFORMATION
  Report Type: Report from Study
  Country: JP (occurrence: JP)
  Receive Date: 20130523
  Receipt Date: 20130528
  Transmission Date: 20140414
  Serious: Yes (Hospitalization, Other)
  Sender: FDA-Public Use
  Company Number: JP-VERTEX PHARMACEUTICALS INC-2013-006277

PATIENT
  Age: 64 Year
  Sex: Male

DRUGS (15)
  1. VX-950 (TELAPREVIR) [Suspect]
     Indication: CHRONIC HEPATITIS C
     Dosage: 2250 MG, QD
     Route: 048
     Dates: start: 20120405, end: 20120410
  2. PEGINTRON [Suspect]
     Indication: CHRONIC HEPATITIS C
     Dosage: 1.5 ?G/KG, QW
     Route: 058
     Dates: start: 20120405, end: 20120517
  3. PEGINTRON [Suspect]
     Dosage: 1.3 ?G/KG, QW
     Route: 058
     Dates: start: 20120524, end: 20120712
  4. PEGINTRON [Suspect]
     Dosage: 1 ?G/KG, QW
     Route: 058
     Dates: start: 20120719, end: 20120913
  5. PEGINTRON [Suspect]
     Dosage: 0.8 ?G/KG
     Route: 058
     Dates: start: 20120920
  6. REBETOL [Suspect]
     Indication: CHRONIC HEPATITIS C
     Dosage: 800 MG, QD
     Route: 048
     Dates: start: 20120405, end: 20120415
  7. REBETOL [Suspect]
     Dosage: 400 MG, QD
     Route: 048
     Dates: start: 20120416, end: 20120418
  8. REBETOL [Suspect]
     Dosage: 200 MG, QD
     Route: 048
     Dates: start: 20120524, end: 20120704
  9. REBETOL [Suspect]
     Dosage: 400 MG, QD
     Route: 048
     Dates: start: 20120705
  10. URSO [Concomitant]
     Dosage: 600 MG, QD
     Route: 048
  11. GLYCYRON [Concomitant]
     Dosage: 6 DF, QD
     Route: 048
  12. TAKEPRON [Concomitant]
     Dosage: 30 MG, QD
     Route: 048
  13. LENDORMIN [Concomitant]
     Dosage: 0.5 MG, QD
     Route: 048
     Dates: end: 20120420
  14. AMOBAN [Concomitant]
     Dosage: 10 MG, QD
     Route: 048
  15. BICALUTAMIDE [Concomitant]
     Dosage: 80 MG, QD
     Route: 048
     Dates: end: 20120420

REACTIONS (2)
  - Rash [Recovered/Resolved]
  - Neutrophil count decreased [Not Recovered/Not Resolved]
